FAERS Safety Report 8514317-2 (Version None)
Quarter: 2012Q3

REPORT INFORMATION
  Report Type: 
  Country: None (occurrence: None)
  Receive Date: 20120717
  Receipt Date: 20120709
  Transmission Date: 20120928
  Serious: Yes (Other)
  Sender: FDA-Public Use
  Company Number: MX-JNJFOC-20120704291

PATIENT
  Sex: Female
  Weight: 46 kg

DRUGS (4)
  1. REMICADE [Suspect]
     Indication: RHEUMATOID ARTHRITIS
     Route: 042
     Dates: start: 20110601
  2. LOPERAMIDE [Concomitant]
     Route: 065
  3. REMICADE [Suspect]
     Indication: CUSHING'S SYNDROME
     Route: 042
     Dates: start: 20110601
  4. MESALAMINE [Concomitant]
     Route: 065

REACTIONS (6)
  - HYPOTENSION [None]
  - RASH [None]
  - NAUSEA [None]
  - RESPIRATORY DISTRESS [None]
  - INFUSION RELATED REACTION [None]
  - VOMITING [None]
